FAERS Safety Report 4327830-9 (Version None)
Quarter: 2004Q1

REPORT INFORMATION
  Report Type: 
  Country: None (occurrence: None)
  Receive Date: 20040325
  Receipt Date: 20040311
  Transmission Date: 20041129
  Serious: Yes (Life-Threatening, Hospitalization)
  Sender: FDA-Public Use
  Company Number: ZONI001355

PATIENT
  Age: 10 Year
  Sex: Male

DRUGS (3)
  1. ZONEGRAN [Suspect]
     Indication: CONVULSION
     Dosage: 200 MG DAILY ORAL
     Route: 048
     Dates: start: 20040130, end: 20040208
  2. PENICILLIN [Suspect]
     Indication: PHARYNGITIS STREPTOCOCCAL
  3. DIASTAT [Concomitant]

REACTIONS (9)
  - ABDOMINAL DISTENSION [None]
  - DRUG INEFFECTIVE [None]
  - HEPATIC FAILURE [None]
  - HEPATOSPLENOMEGALY [None]
  - PHARYNGITIS STREPTOCOCCAL [None]
  - PYREXIA [None]
  - SCARLET FEVER [None]
  - STEVENS-JOHNSON SYNDROME [None]
  - THROMBOCYTOPENIA [None]
